FAERS Safety Report 17029739 (Version 1)
Quarter: 2019Q4

REPORT INFORMATION
  Report Type: Spontaneous
  Country: US (occurrence: US)
  Receive Date: 20191114
  Receipt Date: 20191114
  Transmission Date: 20200122
  Serious: No
  Sender: FDA-Public Use
  Company Number: US-AUROBINDO-AUR-APL-2019-054147

PATIENT

DRUGS (3)
  1. MODAFINIL TABLETS USP 200MG [Interacting]
     Active Substance: MODAFINIL
     Indication: SLEEP APNOEA SYNDROME
  2. MODAFINIL TABLETS USP 200MG [Suspect]
     Active Substance: MODAFINIL
     Indication: NARCOLEPSY
     Dosage: 100 MILLIGRAM, ONCE A DAY IN THE MORNING
     Route: 065
  3. METOPROLOL. [Interacting]
     Active Substance: METOPROLOL
     Indication: PRODUCT USED FOR UNKNOWN INDICATION
     Dosage: 12.5 MILLIGRAM
     Route: 065

REACTIONS (4)
  - Drug interaction [Unknown]
  - Blood pressure increased [Not Recovered/Not Resolved]
  - Somnolence [Unknown]
  - Drug ineffective [Unknown]
